FAERS Safety Report 11163995 (Version 1)
Quarter: 2015Q2

REPORT INFORMATION
  Report Type: Spontaneous
  Country: NL (occurrence: NL)
  Receive Date: 20150604
  Receipt Date: 20150604
  Transmission Date: 20150821
  Serious: Yes (Hospitalization)
  Sender: FDA-Public Use
  Company Number: NL-ACCORD-031217

PATIENT
  Age: 50 Year
  Sex: Female

DRUGS (3)
  1. LEVETIRACETAM. [Suspect]
     Active Substance: LEVETIRACETAM
     Indication: EPILEPSY
     Dates: start: 2010
  2. PARACETAMOL [Concomitant]
     Active Substance: ACETAMINOPHEN
  3. BACLOFEN. [Concomitant]
     Active Substance: BACLOFEN

REACTIONS (6)
  - Dyspnoea [Unknown]
  - Intentional overdose [Unknown]
  - Coma [Recovering/Resolving]
  - Vomiting [Unknown]
  - Confusional state [Unknown]
  - Suicide attempt [Unknown]
